FAERS Safety Report 23627447 (Version 1)
Quarter: 2024Q1

REPORT INFORMATION
  Report Type: Spontaneous
  Country: IT (occurrence: IT)
  Receive Date: 20240313
  Receipt Date: 20240313
  Transmission Date: 20240409
  Serious: Yes (Other)
  Sender: FDA-Public Use
  Company Number: None

PATIENT
  Age: 46 Year
  Sex: Female

DRUGS (2)
  1. ZERBAXA [Suspect]
     Active Substance: CEFTOLOZANE SULFATE\TAZOBACTAM SODIUM
     Indication: Pseudomonal bacteraemia
     Dosage: 4.5 GRAMS IN CONTINUOUS INFUSION OVER 24 HOURS EVERY 24 HOURS.
     Route: 042
     Dates: start: 20240216, end: 20240226
  2. CEFTOLOZANE [Suspect]
     Active Substance: CEFTOLOZANE
     Indication: Pseudomonal bacteraemia
     Dosage: 4.5 GRAMS/24 HOURS
     Route: 042

REACTIONS (2)
  - Leukopenia [Recovering/Resolving]
  - Neutropenia [Recovering/Resolving]

NARRATIVE: CASE EVENT DATE: 20240224
